FAERS Safety Report 4674250-3 (Version None)
Quarter: 2005Q2

REPORT INFORMATION
  Report Type: 
  Country: None (occurrence: None)
  Receive Date: 20050526
  Receipt Date: 20050517
  Transmission Date: 20051028
  Serious: Yes (Hospitalization)
  Sender: FDA-Public Use
  Company Number: DE-JNJFOC-20050501358

PATIENT
  Age: 60 Year
  Sex: Female
  Weight: 67 kg

DRUGS (5)
  1. HALDOL [Suspect]
     Indication: DRUG USE FOR UNKNOWN INDICATION
     Route: 049
     Dates: start: 20040810, end: 20040928
  2. TEGRETOL [Suspect]
     Indication: DRUG USE FOR UNKNOWN INDICATION
     Route: 049
  3. SEROPRAM [Concomitant]
     Route: 049
  4. CLONAZEPAM [Concomitant]
     Route: 049
  5. LITICARB [Concomitant]
     Route: 049

REACTIONS (1)
  - ILEUS [None]
